FAERS Safety Report 8281235-7 (Version None)
Quarter: 2012Q2

REPORT INFORMATION
  Report Type: 
  Country: None (occurrence: None)
  Receive Date: 20120413
  Receipt Date: 20120405
  Transmission Date: 20120825
  Serious: No
  Sender: FDA-Public Use
  Company Number: US-BIOGENIDEC-2012BI012196

PATIENT
  Age: 69 Year
  Sex: Male

DRUGS (2)
  1. HYDROCODONE [Concomitant]
     Indication: PAIN
  2. TYSABRI [Suspect]
     Indication: MULTIPLE SCLEROSIS
     Route: 042
     Dates: start: 20120228

REACTIONS (4)
  - FATIGUE [None]
  - DRUG INEFFECTIVE [None]
  - PRURITUS [None]
  - BACK PAIN [None]
